FAERS Safety Report 8952168 (Version 1)
Quarter: 2012Q4

REPORT INFORMATION
  Report Type: 
  Country: US (occurrence: US)
  Receive Date: 20121204
  Receipt Date: 20121204
  Transmission Date: 20130627
  Serious: No
  Sender: FDA-Public Use
  Company Number: US-AMGEN-USASP2012064471

PATIENT
  Age: 76 Year
  Sex: Female
  Weight: 68.48 kg

DRUGS (1)
  1. ENBREL [Suspect]
     Indication: RHEUMATOID ARTHRITIS
     Dosage: 50 mg, qwk
     Route: 058
     Dates: start: 20120321

REACTIONS (5)
  - Fatigue [Recovered/Resolved]
  - Arthralgia [Recovered/Resolved]
  - Chondropathy [Not Recovered/Not Resolved]
  - Ear infection [Recovered/Resolved]
  - Influenza [Recovered/Resolved]
